FAERS Safety Report 6905183-7 (Version None)
Quarter: 2010Q3

REPORT INFORMATION
  Report Type: 
  Country: None (occurrence: None)
  Receive Date: 20100804
  Receipt Date: 20091211
  Transmission Date: 20110219
  Serious: No
  Sender: FDA-Public Use
  Company Number: US-PFIZER INC-2009228230

PATIENT
  Sex: Female
  Weight: 48.5 kg

DRUGS (4)
  1. LYRICA [Suspect]
     Indication: FIBROMYALGIA
     Dosage: 75 MG, 2X/DAY
     Route: 048
     Dates: start: 20080101
  2. LYRICA [Suspect]
     Dosage: 100 MG, 2X/DAY
     Route: 048
     Dates: start: 20090301
  3. PAROXETINE HYDROCHLORIDE [Concomitant]
     Indication: ANXIETY
     Dosage: UNK
  4. CYCLOBENZAPRINE [Concomitant]
     Indication: MUSCLE SPASMS
     Dosage: 10 MG, 3X/DAY

REACTIONS (5)
  - DRUG INEFFECTIVE [None]
  - NERVOUSNESS [None]
  - PAIN [None]
  - TREMOR [None]
  - WEIGHT INCREASED [None]
